FAERS Safety Report 7729026-7 (Version None)
Quarter: 2011Q3

REPORT INFORMATION
  Report Type: 
  Country: None (occurrence: None)
  Receive Date: 20110906
  Receipt Date: 20110826
  Transmission Date: 20111222
  Serious: Yes (Other)
  Sender: FDA-Public Use
  Company Number: GB-JNJFOC-20110900043

PATIENT
  Age: 37 Year
  Sex: Male

DRUGS (2)
  1. REMICADE [Suspect]
     Indication: INFLAMMATORY BOWEL DISEASE
     Dosage: 3 DOSES ONLY
     Route: 042
  2. AZATHIOPRINE [Concomitant]

REACTIONS (1)
  - DIFFUSE LARGE B-CELL LYMPHOMA [None]
